FAERS Safety Report 22330921 (Version 1)
Quarter: 2023Q2

REPORT INFORMATION
  Report Type: Spontaneous
  Country: US (occurrence: None)
  Receive Date: 20230515
  Receipt Date: 20230515
  Transmission Date: 20230722
  Serious: Yes (unspecified)
  Sender: FDA-Public Use
  Company Number: None

PATIENT
  Age: 34 Year
  Sex: Female
  Weight: 40 kg

DRUGS (4)
  1. ASPIRIN [Suspect]
     Active Substance: ASPIRIN
     Indication: Pregnancy
     Dates: start: 20230506, end: 20230508
  2. PROGESTERONE [Concomitant]
     Active Substance: PROGESTERONE
  3. IRON [Concomitant]
     Active Substance: IRON
  4. VITAMINS [Concomitant]
     Active Substance: VITAMINS

REACTIONS (3)
  - Exposure during pregnancy [None]
  - Maternal drugs affecting foetus [None]
  - Vaginal haemorrhage [None]

NARRATIVE: CASE EVENT DATE: 20230508
